FAERS Safety Report 4899737-X (Version None)
Quarter: 2006Q1

REPORT INFORMATION
  Report Type: 
  Country: None (occurrence: None)
  Receive Date: 20060118
  Receipt Date: 20050721
  Transmission Date: 20060701
  Serious: No
  Sender: FDA-Public Use
  Company Number: 2005001404

PATIENT

DRUGS (1)
  1. TARCEVA [Suspect]

REACTIONS (1)
  - HALLUCINATION [None]
